FAERS Safety Report 9813689 (Version 1)
Quarter: 2014Q1

REPORT INFORMATION
  Report Type: Spontaneous
  Country: US (occurrence: None)
  Receive Date: 20140109
  Receipt Date: 20140109
  Transmission Date: 20141002
  Serious: Yes (Hospitalization)
  Sender: FDA-Public Use
  Company Number: None

PATIENT
  Age: 21 Year
  Sex: Female
  Weight: 63.2 kg

DRUGS (6)
  1. CYTARABINE [Suspect]
  2. DAUNORUBICIN [Suspect]
  3. METHOTREXATE [Suspect]
  4. PEG-L-ESPARAGINASE [Suspect]
  5. PREDNISONE [Suspect]
  6. VINCRISTINE SULFATE [Suspect]

REACTIONS (11)
  - Pyrexia [None]
  - Neutropenia [None]
  - Abdominal pain [None]
  - Constipation [None]
  - Hypotension [None]
  - Septic shock [None]
  - Neutropenic colitis [None]
  - Pseudomonal bacteraemia [None]
  - Colonic abscess [None]
  - Fungal infection [None]
  - Enterococcal infection [None]
